FAERS Safety Report 9289459 (Version 1)
Quarter: 2013Q2

REPORT INFORMATION
  Report Type: Spontaneous
  Country: US (occurrence: US)
  Receive Date: 20130514
  Receipt Date: 20130514
  Transmission Date: 20140414
  Serious: Yes (Hospitalization)
  Sender: FDA-Public Use
  Company Number: US-SANOFI-AVENTIS-2012SA072735

PATIENT
  Age: 71 Year
  Sex: Male

DRUGS (6)
  1. PLAVIX [Suspect]
     Indication: ANTIPLATELET THERAPY
     Route: 048
     Dates: start: 20100128, end: 20100330
  2. ASPIRIN [Concomitant]
     Indication: ANTICOAGULANT THERAPY
  3. AMLODIPINE [Concomitant]
     Indication: CARDIAC DISORDER
  4. SIMVASTATIN [Concomitant]
     Indication: BLOOD CHOLESTEROL
  5. ALPRAZOLAM [Concomitant]
     Indication: ANXIETY
  6. ACETAMINOPHEN [Concomitant]
     Indication: PAIN

REACTIONS (13)
  - Cardiogenic shock [Unknown]
  - Coronary angioplasty [Unknown]
  - Hypertension [Unknown]
  - Dyslipidaemia [Unknown]
  - Respiratory failure [Unknown]
  - Pneumonia aspiration [Unknown]
  - Coronary artery thrombosis [Unknown]
  - Acute myocardial infarction [Unknown]
  - Chest pain [Unknown]
  - Dyspnoea exertional [Unknown]
  - Oedema peripheral [Unknown]
  - Respiratory tract infection [Unknown]
  - Sleep apnoea syndrome [Unknown]
